FAERS Safety Report 10037299 (Version 2)
Quarter: 2014Q2

REPORT INFORMATION
  Report Type: Report from Study
  Country: US (occurrence: US)
  Receive Date: 20140326
  Receipt Date: 20140401
  Transmission Date: 20141212
  Serious: Yes (Life-Threatening, Hospitalization)
  Sender: FDA-Public Use
  Company Number: US-MERCK-1403USA011315

PATIENT
  Age: 57 Year
  Sex: Male
  Weight: 76 kg

DRUGS (18)
  1. VORINOSTAT [Suspect]
     Indication: DIFFUSE LARGE B-CELL LYMPHOMA
     Dosage: 400 MG, QD, ON DAYS 1-5
     Route: 048
     Dates: start: 20130925, end: 20130929
  2. VORINOSTAT [Suspect]
     Dosage: 300 MG, QD, ON DAYS 1
     Route: 048
     Dates: start: 20140305, end: 20140305
  3. VORINOSTAT [Suspect]
     Dosage: ON DAYS 2-5
     Route: 048
     Dates: start: 20140306, end: 20140309
  4. RITUXIMAB [Suspect]
     Indication: DIFFUSE LARGE B-CELL LYMPHOMA
     Dosage: 375MG/M2 IV INFUSION ON DAY 3
     Route: 042
     Dates: start: 20130927, end: 20130927
  5. RITUXIMAB [Suspect]
     Dosage: 375MG/M2 IV INFUSION ON DAY 3
     Route: 042
     Dates: start: 20140307, end: 20140307
  6. CYCLOPHOSPHAMIDE [Suspect]
     Indication: DIFFUSE LARGE B-CELL LYMPHOMA
     Dosage: 750MG/M2 IV OVER 30-60 MINUTES ON DAY 3
     Route: 042
     Dates: start: 20130927, end: 20130927
  7. CYCLOPHOSPHAMIDE [Suspect]
     Dosage: 750MG/M2 IV OVER 30-60 MINUTES ON DAY 3
     Route: 042
     Dates: start: 20140307, end: 20140307
  8. DOXORUBICIN [Suspect]
     Indication: DIFFUSE LARGE B-CELL LYMPHOMA
     Dosage: 50 MG/M2 IVP ON DAY 3
     Route: 042
     Dates: start: 20130927, end: 20130927
  9. DOXORUBICIN [Suspect]
     Dosage: 50 MG/M2 IVP ON DAY 3
     Route: 042
     Dates: start: 20140307, end: 20140307
  10. VINCRISTINE [Suspect]
     Indication: DIFFUSE LARGE B-CELL LYMPHOMA
     Dosage: 1.4 MG/M2 IVP ON DAY 3
     Route: 042
     Dates: start: 20130927, end: 20130927
  11. VINCRISTINE [Suspect]
     Dosage: 1.4 MG/M2 IVP ON DAY 3
     Route: 042
     Dates: start: 20140307, end: 20140307
  12. PREDNISONE [Suspect]
     Indication: DIFFUSE LARGE B-CELL LYMPHOMA
     Dosage: 100 MG, QD, ON DAYS 3-7
     Route: 048
     Dates: start: 20130927, end: 20131001
  13. PREDNISONE [Suspect]
     Dosage: 100 MG, QD, ON DAYS 3-7
     Route: 048
     Dates: start: 20140307, end: 20140311
  14. ACETAMINOPHEN (+) HYDROCODONE BITARTRATE [Concomitant]
  15. CALCIUM CARBONATE [Concomitant]
  16. MIRALAX [Concomitant]
  17. PANTOPRAZOLE [Concomitant]
  18. SUCRALFATE [Concomitant]

REACTIONS (7)
  - Febrile neutropenia [Recovering/Resolving]
  - Sepsis [Recovering/Resolving]
  - Platelet count decreased [Recovering/Resolving]
  - White blood cell count decreased [Recovering/Resolving]
  - Anaemia [Recovering/Resolving]
  - Hypotension [Recovering/Resolving]
  - Lung infection [Recovering/Resolving]
